FAERS Safety Report 9638198 (Version 3)
Quarter: 2013Q4

REPORT INFORMATION
  Report Type: Spontaneous
  Country: US (occurrence: US)
  Receive Date: 20131022
  Receipt Date: 20131202
  Transmission Date: 20140711
  Serious: Yes (Other)
  Sender: FDA-Public Use
  Company Number: US-PFIZER INC-2013299999

PATIENT
  Sex: Male

DRUGS (3)
  1. CELEBREX [Suspect]
     Dosage: UNK
  2. LIPITOR [Suspect]
     Dosage: UNK
  3. PROTONIX [Suspect]
     Dosage: UNK

REACTIONS (4)
  - Shoulder deformity [Unknown]
  - Back disorder [Unknown]
  - Arthritis [Unknown]
  - Nervous system disorder [Unknown]
